FAERS Safety Report 9759749 (Version 1)
Quarter: 2013Q4

REPORT INFORMATION
  Report Type: Spontaneous
  Country: US (occurrence: US)
  Receive Date: 20131216
  Receipt Date: 20131216
  Transmission Date: 20140711
  Serious: No
  Sender: FDA-Public Use
  Company Number: US-GILEAD-2010-0029073

PATIENT
  Age: 75 Year
  Sex: Male

DRUGS (7)
  1. LETAIRIS [Suspect]
     Indication: PULMONARY ARTERIAL HYPERTENSION
     Route: 048
     Dates: start: 20090220
  2. ALENDRONATE SODIUM [Concomitant]
  3. VITAMIN D3 [Concomitant]
  4. VITAMIN D [Concomitant]
  5. MUCINEX [Concomitant]
  6. COREG [Concomitant]
  7. LISINOPRIL [Concomitant]

REACTIONS (3)
  - Cough [Unknown]
  - Local swelling [Unknown]
  - Sinusitis [Unknown]
